FAERS Safety Report 10332244 (Version 1)
Quarter: 2014Q3

REPORT INFORMATION
  Report Type: Spontaneous
  Country: US (occurrence: US)
  Receive Date: 20140722
  Receipt Date: 20140722
  Transmission Date: 20150326
  Serious: Yes (Other)
  Sender: FDA-Public Use
  Company Number: US-MYLANLABS-2014S1016522

PATIENT
  Age: 90 Year
  Sex: Female

DRUGS (2)
  1. CIPROFLOXACIN. [Suspect]
     Active Substance: CIPROFLOXACIN
     Indication: PSEUDOMONAS INFECTION
     Route: 065
  2. METHOTREXATE [Interacting]
     Active Substance: METHOTREXATE
     Indication: PSORIASIS
     Dosage: 7.5-15MG WEEKLY
     Route: 065

REACTIONS (10)
  - Mouth ulceration [Recovering/Resolving]
  - Toxicity to various agents [Recovering/Resolving]
  - Drug interaction [Recovering/Resolving]
  - Platelet count decreased [Recovered/Resolved]
  - Abdominal discomfort [Recovered/Resolved]
  - Liver function test abnormal [Recovering/Resolving]
  - Skin ulcer [Recovering/Resolving]
  - Blood creatinine increased [Recovered/Resolved]
  - Nausea [Unknown]
  - Vomiting [Unknown]
